FAERS Safety Report 10244979 (Version 1)
Quarter: 2014Q2

REPORT INFORMATION
  Report Type: Report from Study
  Country: US (occurrence: US)
  Receive Date: 20140618
  Receipt Date: 20140618
  Transmission Date: 20141212
  Serious: Yes (Hospitalization)
  Sender: FDA-Public Use
  Company Number: US-ABBVIE-14P-163-1246225-00

PATIENT
  Age: 40 Year
  Sex: Female
  Weight: 67.65 kg

DRUGS (5)
  1. HUMIRA [Suspect]
     Indication: CROHN^S DISEASE
     Dates: start: 2011
  2. HUMIRA [Suspect]
     Indication: RHEUMATOID ARTHRITIS
  3. MIDODRINE [Concomitant]
     Indication: PRODUCT USED FOR UNKNOWN INDICATION
     Dosage: PRN
  4. GABAPENTIN [Concomitant]
     Indication: NEUROPATHY PERIPHERAL
  5. OMEPRAZOLE [Concomitant]
     Indication: GASTROOESOPHAGEAL REFLUX DISEASE

REACTIONS (8)
  - Coma [Recovered/Resolved]
  - Accidental overdose [Recovered/Resolved]
  - Insomnia [Recovered/Resolved]
  - Mental impairment [Recovered/Resolved]
  - Memory impairment [Recovered/Resolved]
  - Clostridium difficile infection [Recovered/Resolved]
  - Bipolar disorder [Not Recovered/Not Resolved]
  - Anger [Not Recovered/Not Resolved]
